FAERS Safety Report 4928406-2 (Version None)
Quarter: 2006Q1

REPORT INFORMATION
  Report Type: 
  Country: None (occurrence: None)
  Receive Date: 20060228
  Receipt Date: 20060227
  Transmission Date: 20060701
  Serious: Yes (Hospitalization)
  Sender: FDA-Public Use
  Company Number: AU-MERCK-0602AUS00206

PATIENT
  Age: 61 Year
  Sex: Female

DRUGS (1)
  1. FOSAMAX [Suspect]
     Indication: OSTEOPOROSIS
     Route: 048
     Dates: start: 20060212, end: 20060212

REACTIONS (4)
  - DEHYDRATION [None]
  - DYSPEPSIA [None]
  - INFLUENZA LIKE ILLNESS [None]
  - MALAISE [None]
